FAERS Safety Report 22679054 (Version 6)
Quarter: 2023Q4

REPORT INFORMATION
  Report Type: Spontaneous
  Country: GB (occurrence: GB)
  Receive Date: 20230706
  Receipt Date: 20231116
  Transmission Date: 20240109
  Serious: Yes (Hospitalization, Other)
  Sender: FDA-Public Use
  Company Number: GB-VER-202300016

PATIENT
  Age: 81 Year
  Sex: Male

DRUGS (7)
  1. TRIPTORELIN PAMOATE [Suspect]
     Active Substance: TRIPTORELIN PAMOATE
     Indication: Product used for unknown indication
     Dosage: ??0.0056 DOSAGE FORMS (1 DOSAGE FORMS,1 IN 6 M)
     Route: 065
     Dates: start: 202212
  2. TRIPTORELIN PAMOATE [Suspect]
     Active Substance: TRIPTORELIN PAMOATE
     Indication: Product used for unknown indication
     Dosage: POWDER AND SOLVENT FOR SUSPENSION FOR INJECTION. BATCH/LOT NUMBER AND EXPIRATION DATE WERE NOT REPOR
     Route: 065
  3. TAMSULOSIN [Concomitant]
     Active Substance: TAMSULOSIN
     Indication: Product used for unknown indication
     Dosage: MODIFIED-RELEASE CAPSULE ONE TO BE TAKEN EACH DAY (1 D)
     Route: 065
     Dates: start: 20230615
  4. ATORVASTATIN [Concomitant]
     Active Substance: ATORVASTATIN
     Indication: Surgery
     Dosage: ONE TO BE TAKEN AT NIGHT (1 D)
     Route: 065
     Dates: start: 20230615
  5. ASPIRIN [Concomitant]
     Active Substance: ASPIRIN
     Indication: Product used for unknown indication
     Dosage: ONE TO BE TAKEN DAILY - SUSPENDED ON?ADMISSION (1 D)
     Route: 065
  6. HUMALOG [Concomitant]
     Active Substance: INSULIN LISPRO
     Indication: Product used for unknown indication
     Route: 065
  7. INSULIN HUMAN [Concomitant]
     Active Substance: INSULIN HUMAN
     Indication: Product used for unknown indication
     Dosage: 100UNITS/ML. 14 UNITS IN THE MORNING + 10UNITS AT TEATIME
     Route: 065

REACTIONS (2)
  - Femoral neck fracture [Recovered/Resolved]
  - Product dose omission issue [Recovered/Resolved]
